FAERS Safety Report 23060800 (Version 2)
Quarter: 2023Q4

REPORT INFORMATION
  Report Type: Report from Study
  Country: US (occurrence: US)
  Receive Date: 20231012
  Receipt Date: 20231223
  Transmission Date: 20240110
  Serious: Yes (Life-Threatening, Hospitalization, Other)
  Sender: FDA-Public Use
  Company Number: US-TEVA-2023-US-2934437

PATIENT
  Age: 14 Year
  Weight: 93.6 kg

DRUGS (11)
  1. METHOTREXATE [Suspect]
     Active Substance: METHOTREXATE
     Indication: Acute lymphocytic leukaemia
     Dosage: DOSAGE TEXT: 317 MILLIGRAM X 2 DOSES
     Route: 042
     Dates: start: 20230626
  2. METHOTREXATE [Suspect]
     Active Substance: METHOTREXATE
     Indication: Acute lymphocytic leukaemia
     Route: 065
  3. RUXOLITINIB [Suspect]
     Active Substance: RUXOLITINIB
     Indication: Acute lymphocytic leukaemia
     Route: 048
     Dates: start: 20230615
  4. ONDANSETRON [Concomitant]
     Active Substance: ONDANSETRON
     Indication: Product used for unknown indication
     Dates: start: 20230830
  5. LEXAPRO [Concomitant]
     Active Substance: ESCITALOPRAM OXALATE
     Indication: Product used for unknown indication
  6. RYLAZE [Suspect]
     Active Substance: ASPARAGINASE ERWINIA CHRYSANTHEMI (RECOMBINANT)-RYWN
     Indication: Acute lymphocytic leukaemia
     Dosage: 100 MILLIGRAM X 6 DOSES
     Route: 042
     Dates: start: 20230616
  7. MERCAPTOPURINE [Suspect]
     Active Substance: MERCAPTOPURINE
     Indication: Acute lymphocytic leukaemia
     Dosage: DOSAGE TEXT: 150 MG 6 DAYS/WEEK, 175MG 1 DAY/WEEK
     Route: 048
     Dates: start: 20230822, end: 20230908
  8. METHOTREXATE [Suspect]
     Active Substance: METHOTREXATE
     Indication: Acute lymphocytic leukaemia
     Dosage: DOSAGE TEXT: 210 MG
     Route: 048
     Dates: start: 20230615
  9. METHOTREXATE [Suspect]
     Active Substance: METHOTREXATE
     Indication: Acute lymphocytic leukaemia
     Dosage: DOSAGE TEXT: 41.25 MG ONCE PER WEEK
     Route: 048
     Dates: start: 20230829, end: 20230908
  10. METHOTREXATE [Suspect]
     Active Substance: METHOTREXATE
     Indication: Acute lymphocytic leukaemia
     Dosage: DOSAGE TEXT: 15 MILLIGRAM X 2 DOSES
     Route: 037
     Dates: start: 20230615
  11. VINCRISTINE [Suspect]
     Active Substance: VINCRISTINE
     Indication: Acute lymphocytic leukaemia
     Dosage: DOSAGE TEXT: 2 MILLIGRAM X 5 DOSES
     Route: 042
     Dates: start: 20230615

REACTIONS (7)
  - Electrocardiogram QT prolonged [Recovered/Resolved]
  - Febrile neutropenia [Recovered/Resolved]
  - Hepatic failure [Recovered/Resolved]
  - Syncope [Recovered/Resolved]
  - Encephalopathy [Recovered/Resolved]
  - Stomatitis [Recovered/Resolved]
  - Chest pain [Recovered/Resolved]

NARRATIVE: CASE EVENT DATE: 20230808
